FAERS Safety Report 24107763 (Version 1)
Quarter: 2024Q3

REPORT INFORMATION
  Report Type: Spontaneous
  Country: US (occurrence: None)
  Receive Date: 20240718
  Receipt Date: 20240718
  Transmission Date: 20241017
  Serious: No
  Sender: ASTRAZENECA
  Company Number: 2024A114722

PATIENT
  Age: 21545 Day
  Sex: Male

DRUGS (1)
  1. BYDUREON BCISE [Suspect]
     Active Substance: EXENATIDE
     Dosage: 2MG/ML
     Dates: start: 202403

REACTIONS (4)
  - Incorrect dose administered by device [Unknown]
  - Drug ineffective [Unknown]
  - Injection site scar [Unknown]
  - Needle issue [Unknown]

NARRATIVE: CASE EVENT DATE: 20240515
